FAERS Safety Report 9935503 (Version 2)
Quarter: 2014Q1

REPORT INFORMATION
  Report Type: Spontaneous
  Country: US (occurrence: US)
  Receive Date: 20140228
  Receipt Date: 20140320
  Transmission Date: 20141002
  Serious: No
  Sender: FDA-Public Use
  Company Number: US-PFIZER INC-2014056742

PATIENT
  Age: 63 Year
  Sex: Female
  Weight: 75.74 kg

DRUGS (1)
  1. GABAPENTIN [Suspect]
     Indication: NERVOUS SYSTEM DISORDER
     Dosage: UNK

REACTIONS (1)
  - Drug ineffective [Unknown]
